FAERS Safety Report 6609582-2 (Version None)
Quarter: 2010Q1

REPORT INFORMATION
  Report Type: 
  Country: None (occurrence: None)
  Receive Date: 20100302
  Receipt Date: 20100223
  Transmission Date: 20100710
  Serious: Yes (Hospitalization)
  Sender: FDA-Public Use
  Company Number: US-SANOFI-AVENTIS-2010SA010379

PATIENT
  Sex: Female

DRUGS (5)
  1. LOVENOX [Suspect]
     Indication: THROMBOSIS
     Route: 058
  2. LOVENOX [Suspect]
     Indication: PULMONARY EMBOLISM
     Route: 058
  3. LOVENOX [Suspect]
     Route: 065
     Dates: start: 20100217, end: 20100217
  4. LOVENOX [Suspect]
     Route: 065
     Dates: start: 20100217, end: 20100217
  5. COUMADIN [Concomitant]

REACTIONS (2)
  - INTENTIONAL DRUG MISUSE [None]
  - INTENTIONAL OVERDOSE [None]
